FAERS Safety Report 16498607 (Version 1)
Quarter: 2019Q2

REPORT INFORMATION
  Report Type: Spontaneous
  Country: JP (occurrence: JP)
  Receive Date: 20190629
  Receipt Date: 20190629
  Transmission Date: 20190711
  Serious: Yes (Hospitalization)
  Sender: FDA-Public Use
  Company Number: PHJP2019JP007771

PATIENT
  Age: 57 Year
  Sex: Female

DRUGS (2)
  1. EXEMESTANE. [Concomitant]
     Active Substance: EXEMESTANE
     Indication: BREAST CANCER STAGE IV
     Dosage: UNK
     Route: 065
     Dates: start: 20050918
  2. EVEROLIMUS. [Suspect]
     Active Substance: EVEROLIMUS
     Indication: BREAST CANCER STAGE IV
     Dosage: UNK
     Route: 048
     Dates: start: 20180918

REACTIONS (3)
  - Skin ulcer [Unknown]
  - Hypoalbuminaemia [Unknown]
  - Oedema peripheral [Unknown]
